FAERS Safety Report 10508140 (Version 1)
Quarter: 2014Q4

REPORT INFORMATION
  Report Type: Spontaneous
  Country: US (occurrence: US)
  Receive Date: 20141009
  Receipt Date: 20141009
  Transmission Date: 20150528
  Serious: No
  Sender: FDA-Public Use
  Company Number: US-ASTELLAS-2014US013795

PATIENT
  Sex: Female

DRUGS (2)
  1. MYRBETRIQ [Suspect]
     Active Substance: MIRABEGRON
     Indication: HYPERTONIC BLADDER
     Route: 065
     Dates: start: 201408, end: 201409
  2. MYRBETRIQ [Suspect]
     Active Substance: MIRABEGRON
     Route: 065
     Dates: start: 201409

REACTIONS (1)
  - Drug ineffective [Unknown]
